FAERS Safety Report 7982935-6 (Version None)
Quarter: 2011Q4

REPORT INFORMATION
  Report Type: 
  Country: None (occurrence: None)
  Receive Date: 20111215
  Receipt Date: 20111206
  Transmission Date: 20120403
  Serious: Yes (Hospitalization)
  Sender: FDA-Public Use
  Company Number: US-ABBOTT-11P-163-0836437-00

PATIENT
  Sex: Female
  Weight: 83.99 kg

DRUGS (8)
  1. CAFFEINE CITRATE [Concomitant]
     Indication: PRODUCT USED FOR UNKNOWN INDICATION
     Dosage: SODA, 1 SERVING EVERY 1.5 WEEKS
     Route: 048
     Dates: start: 20110801, end: 20111015
  2. FLUOXETINE HYDROCHLORIDE [Concomitant]
     Indication: DEPRESSION
     Route: 048
     Dates: start: 20110204, end: 20110313
  3. DHA [Concomitant]
     Indication: PRODUCT USED FOR UNKNOWN INDICATION
     Route: 048
     Dates: start: 20110524, end: 20111125
  4. MULTI-VITAMINS [Concomitant]
     Indication: PRODUCT USED FOR UNKNOWN INDICATION
     Route: 048
     Dates: start: 20110525, end: 20111125
  5. HUMIRA [Suspect]
     Indication: CROHN'S DISEASE
     Route: 050
     Dates: start: 20110204, end: 20111125
  6. CONDOMS PLUS SPERMACIDE [Concomitant]
     Indication: PRODUCT USED FOR UNKNOWN INDICATION
     Route: 061
     Dates: start: 20110204, end: 20110312
  7. MULTI-VITAMINS [Concomitant]
     Indication: PRODUCT USED FOR UNKNOWN INDICATION
     Route: 048
     Dates: start: 20110204, end: 20110524
  8. OTHER CHEMICALS/EXPOSURE [Concomitant]
     Indication: ANTIALLERGIC THERAPY
     Route: 048
     Dates: start: 20110526, end: 20110609

REACTIONS (10)
  - TENDONITIS [None]
  - INSOMNIA [None]
  - HYPERSENSITIVITY [None]
  - CROHN'S DISEASE [None]
  - RESPIRATORY TRACT INFECTION [None]
  - DYSPEPSIA [None]
  - SMALL INTESTINE ULCER [None]
  - NASOPHARYNGITIS [None]
  - PAIN [None]
  - ANAEMIA [None]
